FAERS Safety Report 12376806 (Version 2)
Quarter: 2016Q2

REPORT INFORMATION
  Report Type: Report from Study
  Country: US (occurrence: US)
  Receive Date: 20160517
  Receipt Date: 20160517
  Transmission Date: 20160815
  Serious: No
  Sender: FDA-Public Use
  Company Number: US-MALLINCKRODT-T201503204

PATIENT
  Sex: Female

DRUGS (2)
  1. REPOSITORY CORTICOTROPIN INJECTION [Suspect]
     Active Substance: CORTICOTROPIN
     Indication: GLOMERULONEPHRITIS MEMBRANOUS
     Dosage: 40 UNITS TWICE WKLY
     Route: 058
  2. REPOSITORY CORTICOTROPIN INJECTION [Suspect]
     Active Substance: CORTICOTROPIN
     Dosage: UNK
     Route: 065
     Dates: start: 20150401

REACTIONS (6)
  - Asthenia [Unknown]
  - Urinary tract infection [Unknown]
  - Malaise [Unknown]
  - Gastrointestinal disorder [Unknown]
  - Rash [Unknown]
  - Pneumonia [Not Recovered/Not Resolved]
